FAERS Safety Report 6577105-2 (Version None)
Quarter: 2010Q1

REPORT INFORMATION
  Report Type: 
  Country: None (occurrence: None)
  Receive Date: 20100210
  Receipt Date: 20100202
  Transmission Date: 20100710
  Serious: Yes (Hospitalization)
  Sender: FDA-Public Use
  Company Number: TR-ELI_LILLY_AND_COMPANY-TR201002001377

PATIENT
  Sex: Female
  Weight: 1.88 kg

DRUGS (3)
  1. HUMALOG [Suspect]
     Indication: GESTATIONAL DIABETES
     Dosage: 38 IU, EACH MORNING
     Route: 064
     Dates: start: 20090101
  2. INSULATARD [Concomitant]
     Indication: GESTATIONAL DIABETES
     Dosage: 40 IU, OTHER
     Dates: start: 20090601
  3. IRON [Concomitant]
     Indication: MINERAL SUPPLEMENTATION
     Dosage: UNK, DAILY (1/D)
     Dates: start: 20090601

REACTIONS (2)
  - DRUG EXPOSURE DURING PREGNANCY [None]
  - PREMATURE BABY [None]
